FAERS Safety Report 13178491 (Version 1)
Quarter: 2017Q1

REPORT INFORMATION
  Report Type: Spontaneous
  Country: US (occurrence: US)
  Receive Date: 20170202
  Receipt Date: 20170202
  Transmission Date: 20170509
  Serious: No
  Sender: FDA-Public Use
  Company Number: None

PATIENT
  Age: 72 Year
  Sex: Female
  Weight: 70.31 kg

DRUGS (5)
  1. OCUVITE [Concomitant]
     Active Substance: VITAMINS
  2. CALTRATE MINIS [Concomitant]
  3. VIACTIV [Concomitant]
     Active Substance: CALCIUM\VITAMIN D\VITAMIN K5
  4. VITAMIN D3 [Concomitant]
     Active Substance: CHOLECALCIFEROL
  5. ALENDRONATE SODIUM TABLETS USP 70MG-ONCE DAILY [Suspect]
     Active Substance: ALENDRONATE SODIUM
     Indication: OSTEOPOROSIS
     Dosage: ROUTE - BY MOUTH W/FULL GLASS OF H2O BEFORE BREAKFAST
     Route: 048
     Dates: start: 20160926, end: 20161210

REACTIONS (7)
  - Oral pain [None]
  - Gingival erythema [None]
  - Feeling abnormal [None]
  - Gingival pain [None]
  - Glossodynia [None]
  - Gingival swelling [None]
  - Gingival bleeding [None]

NARRATIVE: CASE EVENT DATE: 20161212
